FAERS Safety Report 17550354 (Version 1)
Quarter: 2020Q1

REPORT INFORMATION
  Report Type: Report from Study
  Country: PL (occurrence: PL)
  Receive Date: 20200317
  Receipt Date: 20200317
  Transmission Date: 20200409
  Serious: Yes (Other)
  Sender: FDA-Public Use
  Company Number: PL-PFIZER INC-2020109917

PATIENT
  Age: 58 Year
  Sex: Female

DRUGS (6)
  1. ASPIRINE [Concomitant]
     Active Substance: ASPIRIN
  2. RAMIPRIL. [Concomitant]
     Active Substance: RAMIPRIL
  3. TRIMETAZIDINE [Concomitant]
     Active Substance: TRIMETAZIDINE
  4. DILTIAZEM HCL [Suspect]
     Active Substance: DILTIAZEM HYDROCHLORIDE
  5. IVABRADINE [Concomitant]
     Active Substance: IVABRADINE
  6. SERTINDOLE [Interacting]
     Active Substance: SERTINDOLE

REACTIONS (2)
  - Ventricular arrhythmia [Unknown]
  - Drug interaction [Unknown]
